FAERS Safety Report 19713266 (Version 1)
Quarter: 2021Q3

REPORT INFORMATION
  Report Type: Spontaneous
  Country: US (occurrence: US)
  Receive Date: 20210817
  Receipt Date: 20210817
  Transmission Date: 20211014
  Serious: No
  Sender: FDA-Public Use
  Company Number: None

PATIENT
  Age: 65 Year
  Sex: Male
  Weight: 76 kg

DRUGS (1)
  1. TRAZODONE (TRAZODONE HCL 100MG TAB) [Suspect]
     Active Substance: TRAZODONE HYDROCHLORIDE
     Indication: INSOMNIA
     Route: 048
     Dates: start: 20201111, end: 20210501

REACTIONS (4)
  - Priapism [None]
  - PO2 abnormal [None]
  - Blood pH decreased [None]
  - PCO2 increased [None]

NARRATIVE: CASE EVENT DATE: 20210501
